FAERS Safety Report 7021152-3 (Version None)
Quarter: 2010Q3

REPORT INFORMATION
  Report Type: 
  Country: None (occurrence: None)
  Receive Date: 20100929
  Receipt Date: 20100922
  Transmission Date: 20110219
  Serious: Yes (Hospitalization, Other)
  Sender: FDA-Public Use
  Company Number: US-RB-013628-10

PATIENT
  Age: 43 Year
  Sex: Female

DRUGS (3)
  1. SUBUTEX [Suspect]
     Indication: DRUG DEPENDENCE
     Dosage: UNKNOWN DOSING DETAILS
     Route: 060
     Dates: start: 20090101
  2. KLONOPIN [Suspect]
     Indication: ANXIETY
     Dosage: TOOK REDUCING DOSES(EXACT DETAILS UNKNOWN)
     Route: 065
  3. KLONOPIN [Suspect]
     Route: 065

REACTIONS (13)
  - ARTHRITIS [None]
  - CONVULSION [None]
  - DECREASED APPETITE [None]
  - FALL [None]
  - INFLAMMATION [None]
  - LOSS OF CONSCIOUSNESS [None]
  - MUSCULOSKELETAL PAIN [None]
  - PREMATURE MENOPAUSE [None]
  - ROTATOR CUFF SYNDROME [None]
  - SPINAL CORD INJURY CERVICAL [None]
  - SPINAL DISORDER [None]
  - SYNCOPE [None]
  - TENDONITIS [None]
